FAERS Safety Report 9928155 (Version 1)
Quarter: 2014Q1

REPORT INFORMATION
  Report Type: Report from Study
  Country: US (occurrence: US)
  Receive Date: 20140227
  Receipt Date: 20140227
  Transmission Date: 20141002
  Serious: Yes (Other)
  Sender: FDA-Public Use
  Company Number: US-ROCHE-1342684

PATIENT
  Age: 58 Year
  Sex: Female

DRUGS (13)
  1. LUCENTIS [Suspect]
     Indication: VENOUS OCCLUSION
     Route: 050
  2. LUCENTIS [Suspect]
     Indication: RETINAL OEDEMA
     Route: 050
     Dates: start: 20110810
  3. LUCENTIS [Suspect]
     Indication: RETINAL VEIN OCCLUSION
     Route: 050
     Dates: start: 20110928
  4. LUCENTIS [Suspect]
     Route: 050
     Dates: start: 20111109
  5. LUCENTIS [Suspect]
     Route: 050
     Dates: start: 20111116
  6. LUCENTIS [Suspect]
     Route: 050
     Dates: start: 20120104
  7. LUCENTIS [Suspect]
     Route: 050
     Dates: start: 20120314
  8. LUCENTIS [Suspect]
     Route: 050
     Dates: start: 20120725
  9. LUCENTIS [Suspect]
     Route: 050
     Dates: start: 20120905
  10. AVASTIN [Suspect]
     Indication: PRODUCT USED FOR UNKNOWN INDICATION
     Dosage: OS
     Route: 050
  11. PROPARACAINE [Concomitant]
     Route: 061
  12. POVIDONE IODINE [Concomitant]
  13. OCUFLOX [Concomitant]

REACTIONS (8)
  - Myocardial infarction [Unknown]
  - Macular oedema [Unknown]
  - Vitreous detachment [Unknown]
  - Vitreous floaters [Unknown]
  - Blood pressure increased [Unknown]
  - Metamorphopsia [Unknown]
  - Aneurysm [Unknown]
  - Cataract nuclear [Unknown]
